FAERS Safety Report 23352658 (Version 1)
Quarter: 2023Q4

REPORT INFORMATION
  Report Type: Spontaneous
  Country: SE (occurrence: SE)
  Receive Date: 20231230
  Receipt Date: 20231230
  Transmission Date: 20240110
  Serious: Yes (Other)
  Sender: FDA-Public Use
  Company Number: None

PATIENT
  Age: 61 Year
  Sex: Male
  Weight: 80 kg

DRUGS (4)
  1. ZYCLARA [Suspect]
     Active Substance: IMIQUIMOD
     Indication: Actinic keratosis
     Dosage: 500 MILLIGRAM, QD (2*250 MG 1 TIME/DAY FOR 14DAYS)
     Route: 061
     Dates: start: 20191219, end: 20200101
  2. AMLODIPINE BESYLATE [Concomitant]
     Active Substance: AMLODIPINE BESYLATE
     Indication: Product used for unknown indication
     Route: 065
     Dates: start: 20100101, end: 20231027
  3. ATORVASTATIN [Concomitant]
     Active Substance: ATORVASTATIN
     Indication: Product used for unknown indication
     Route: 065
  4. CANDESARSTAD [Concomitant]
     Indication: Product used for unknown indication
     Route: 065
     Dates: start: 20100101, end: 20231027

REACTIONS (12)
  - Epistaxis [Recovered/Resolved]
  - Parosmia [Recovered/Resolved]
  - Decreased appetite [Recovered/Resolved]
  - Photophobia [Recovered/Resolved]
  - Eye pain [Recovered/Resolved]
  - Hyperacusis [Recovered/Resolved]
  - Depression [Recovered/Resolved]
  - Nausea [Recovered/Resolved]
  - Insomnia [Recovered/Resolved]
  - Vomiting [Recovered/Resolved]
  - Fatigue [Recovered/Resolved]
  - Headache [Recovered/Resolved]

NARRATIVE: CASE EVENT DATE: 20191227
